FAERS Safety Report 7746146-1 (Version None)
Quarter: 2011Q3

REPORT INFORMATION
  Report Type: 
  Country: None (occurrence: None)
  Receive Date: 20110913
  Receipt Date: 20110831
  Transmission Date: 20111222
  Serious: Yes (Other)
  Sender: FDA-Public Use
  Company Number: US-ELI_LILLY_AND_COMPANY-US201109000371

PATIENT
  Sex: Female

DRUGS (4)
  1. ACTONEL [Concomitant]
  2. VITAMIN D [Concomitant]
  3. FORTEO [Suspect]
     Indication: OSTEOPOROSIS
     Dosage: 20 UG, QD
     Route: 065
     Dates: start: 20051101, end: 20071101
  4. CITRACAL [Concomitant]

REACTIONS (2)
  - BONE DENSITY DECREASED [None]
  - UTERINE CANCER [None]
